FAERS Safety Report 8702367 (Version 3)
Quarter: 2012Q4

REPORT INFORMATION
  Report Type: 
  Country: US (occurrence: US)
  Receive Date: 20120803
  Receipt Date: 20120907
  Transmission Date: 20130627
  Serious: Yes (Hospitalization, Other)
  Sender: FDA-Public Use
  Company Number: US-009507513-2012SP010634

PATIENT

DRUGS (3)
  1. NUVARING [Suspect]
     Indication: CONTRACEPTION
     Dates: start: 200707, end: 200808
  2. NUVARING [Suspect]
     Indication: ACNE
     Dates: start: 20081117, end: 200905
  3. NUVARING [Suspect]
     Dates: start: 200910, end: 20100324

REACTIONS (10)
  - Blood potassium decreased [Recovering/Resolving]
  - Pulmonary embolism [Unknown]
  - Anxiety [Not Recovered/Not Resolved]
  - Abortion spontaneous [Recovered/Resolved]
  - Nasopharyngitis [Unknown]
  - Chest pain [Unknown]
  - Urinary tract infection [Unknown]
  - Constipation [Unknown]
  - Adenoma benign [Unknown]
  - Dizziness [Unknown]
